FAERS Safety Report 17169312 (Version 1)
Quarter: 2019Q4

REPORT INFORMATION
  Report Type: Spontaneous
  Country: US (occurrence: US)
  Receive Date: 20191218
  Receipt Date: 20191218
  Transmission Date: 20200122
  Serious: Yes (Other)
  Sender: FDA-Public Use
  Company Number: US-ROCHE-2501492

PATIENT
  Age: 71 Year
  Sex: Male

DRUGS (8)
  1. ALUMINUM HYDROXIDE GEL [Concomitant]
     Active Substance: ALGELDRATE
  2. DIGOXIN. [Concomitant]
     Active Substance: DIGOXIN
  3. FLURAZEPAM [Suspect]
     Active Substance: FLURAZEPAM HYDROCHLORIDE
     Indication: PRODUCT USED FOR UNKNOWN INDICATION
     Route: 065
  4. DIAZEPAM. [Suspect]
     Active Substance: DIAZEPAM
     Indication: PRODUCT USED FOR UNKNOWN INDICATION
     Route: 065
  5. FOLIC ACID. [Concomitant]
     Active Substance: FOLIC ACID
  6. IRON DEXTRAN [Concomitant]
     Active Substance: IRON DEXTRAN
  7. NANDROLONE PHENPROPIONATE [Concomitant]
     Active Substance: NANDROLONE PHENPROPIONATE
  8. HYDRALAZINE [Concomitant]
     Active Substance: HYDRALAZINE HYDROCHLORIDE

REACTIONS (1)
  - Toxic encephalopathy [Recovered/Resolved]
